FAERS Safety Report 7226647-5 (Version None)
Quarter: 2011Q1

REPORT INFORMATION
  Report Type: 
  Country: None (occurrence: None)
  Receive Date: 20110114
  Receipt Date: 20110104
  Transmission Date: 20110831
  Serious: Yes (Other)
  Sender: FDA-Public Use
  Company Number: SE-JNJFOC-20101007746

PATIENT
  Age: 3 Decade
  Sex: Male

DRUGS (2)
  1. CAELYX [Suspect]
     Indication: DESMOID TUMOUR
     Route: 042
  2. CAELYX [Suspect]
     Dosage: 2 CYCLES
     Route: 042

REACTIONS (2)
  - OFF LABEL USE [None]
  - DERMATITIS [None]
